FAERS Safety Report 6221657-9 (Version None)
Quarter: 2009Q2

REPORT INFORMATION
  Report Type: 
  Country: None (occurrence: None)
  Receive Date: 20090610
  Receipt Date: 20090529
  Transmission Date: 20091009
  Serious: Yes (Other)
  Sender: FDA-Public Use
  Company Number: PHHY2009ZA11087

PATIENT
  Sex: Female

DRUGS (12)
  1. DIOVAN HCT [Suspect]
  2. EXFORGE [Suspect]
     Dosage: 160/10
     Route: 048
  3. ZANIDIP [Concomitant]
  4. CARDURA                                 /IRE/ [Concomitant]
  5. LISINOPRIL [Concomitant]
  6. ADALAT [Concomitant]
  7. COZAAR [Concomitant]
  8. AMLOC [Concomitant]
  9. RIDAQ [Concomitant]
  10. TILAZEM ^ELAN^ [Concomitant]
  11. TEN-BLOKA [Concomitant]
  12. PHYSIOTENS ^GIULINI^ [Concomitant]

REACTIONS (1)
  - BLOOD PRESSURE INADEQUATELY CONTROLLED [None]
